FAERS Safety Report 8948529 (Version 1)
Quarter: 2012Q4

REPORT INFORMATION
  Report Type: Spontaneous
  Country: GB (occurrence: None)
  Receive Date: 20121123
  Receipt Date: 20121123
  Transmission Date: 20130627
  Serious: Yes (Hospitalization, Disabling)
  Sender: FDA-Public Use
  Company Number: DSA_61021_2012

PATIENT
  Age: 57 Year
  Sex: Female

DRUGS (3)
  1. METRONIDAZOLE (METRONIDAZOLE) [Suspect]
     Dosage: Single dose of 2
     Dates: start: 20121102, end: 20121102
  2. ANTIBIOTICS [Concomitant]
  3. CANESTEN [Concomitant]

REACTIONS (4)
  - Memory impairment [None]
  - Confusional state [None]
  - Disorientation [None]
  - Aphasia [None]
